FAERS Safety Report 5364085-0 (Version None)
Quarter: 2007Q2

REPORT INFORMATION
  Report Type: 
  Country: None (occurrence: None)
  Receive Date: 20070620
  Receipt Date: 20070609
  Transmission Date: 20071010
  Serious: Yes (Other)
  Sender: FDA-Public Use
  Company Number: US-PFIZER INC-2007047122

PATIENT
  Sex: Female
  Weight: 66.7 kg

DRUGS (6)
  1. DILANTIN [Interacting]
     Indication: CONVULSION
  2. ZOLOFT [Interacting]
     Indication: DEPRESSION
  3. KLONOPIN [Interacting]
     Indication: PANIC ATTACK
  4. KLONOPIN [Interacting]
     Indication: INSOMNIA
  5. LORAZEPAM [Suspect]
  6. PHENOBARBITAL TAB [Concomitant]

REACTIONS (8)
  - DEPRESSION [None]
  - DRUG INTERACTION [None]
  - FEELING JITTERY [None]
  - NERVOUSNESS [None]
  - PANIC ATTACK [None]
  - PROTHROMBIN TIME PROLONGED [None]
  - SOMNOLENCE [None]
  - THROMBOSIS [None]
